FAERS Safety Report 18031629 (Version 5)
Quarter: 2021Q2

REPORT INFORMATION
  Report Type: Other
  Country: CA (occurrence: CA)
  Receive Date: 20200716
  Receipt Date: 20210607
  Transmission Date: 20210717
  Serious: Yes (Hospitalization, Other)
  Sender: FDA-Public Use
  Company Number: CA-APOTEX-2020AP013664

PATIENT
  Age: 37 Year
  Sex: Female

DRUGS (22)
  1. ESOMEPRAZOLE MAGNESIUM TRIHYDRATE [Concomitant]
     Active Substance: ESOMEPRAZOLE MAGNESIUM
     Indication: PRODUCT USED FOR UNKNOWN INDICATION
     Dosage: UNK
     Route: 065
  2. DEXAMETHASONE. [Concomitant]
     Active Substance: DEXAMETHASONE
     Indication: CHRONIC SPONTANEOUS URTICARIA
     Dosage: UNK
     Route: 065
  3. ZANTAC [Concomitant]
     Active Substance: RANITIDINE HYDROCHLORIDE
     Dosage: 1 DOSAGE FORM, QD
     Route: 048
  4. CALCIUM [Concomitant]
     Active Substance: CALCIUM
     Indication: PRODUCT USED FOR UNKNOWN INDICATION
     Dosage: UNK
     Route: 065
  5. BILASTINE [Concomitant]
     Active Substance: BILASTINE
     Dosage: UNK
     Route: 048
  6. MYCOPHENOLATE MOFETIL. [Suspect]
     Active Substance: MYCOPHENOLATE MOFETIL
     Indication: TRANSPLANT REJECTION
     Dosage: 1 DOSAGE FORM, QD
     Route: 048
  7. OMALIZUMAB. [Suspect]
     Active Substance: OMALIZUMAB
     Dosage: UNK
     Route: 058
  8. CLOBAZAM. [Concomitant]
     Active Substance: CLOBAZAM
     Indication: PRODUCT USED FOR UNKNOWN INDICATION
     Dosage: UNK
     Route: 065
  9. SINGULAIR [Concomitant]
     Active Substance: MONTELUKAST SODIUM
     Indication: CHRONIC SPONTANEOUS URTICARIA
     Dosage: 1 DOSAGE FORM, QD
     Route: 048
  10. REACTIN [CETIRIZINE HYDROCHLORIDE] [Concomitant]
     Indication: URTICARIA
     Dosage: 1 DOSAGE FORM, BID
     Route: 048
  11. BENADRYL [Concomitant]
     Active Substance: DIPHENHYDRAMINE HYDROCHLORIDE
     Indication: CHRONIC SPONTANEOUS URTICARIA
     Dosage: 1 DOSAGE FORM
     Route: 048
  12. SINGULAIR [Concomitant]
     Active Substance: MONTELUKAST SODIUM
     Dosage: UNK
     Route: 048
  13. MYCOPHENOLATE MOFETIL. [Suspect]
     Active Substance: MYCOPHENOLATE MOFETIL
     Dosage: UNK
     Route: 048
  14. REACTIN [CETIRIZINE HYDROCHLORIDE] [Concomitant]
     Indication: CHRONIC SPONTANEOUS URTICARIA
     Dosage: 1 DOSAGE FORM, QD
     Route: 048
  15. IMMUNE GLOBULIN [Concomitant]
     Indication: CHRONIC SPONTANEOUS URTICARIA
     Dosage: 1 DOSAGE FORM, QD
     Route: 042
  16. ZANTAC [Concomitant]
     Active Substance: RANITIDINE HYDROCHLORIDE
     Indication: CHRONIC SPONTANEOUS URTICARIA
     Dosage: 1 DOSAGE FORM, QD
     Route: 048
  17. OMALIZUMAB. [Suspect]
     Active Substance: OMALIZUMAB
     Dosage: 300 MILLIGRAM
     Route: 058
  18. OMALIZUMAB. [Suspect]
     Active Substance: OMALIZUMAB
     Indication: CHRONIC SPONTANEOUS URTICARIA
     Dosage: UNK
     Route: 058
  19. BILASTINE [Concomitant]
     Active Substance: BILASTINE
     Indication: CHRONIC SPONTANEOUS URTICARIA
     Dosage: 1 DOSAGE FORM, QD
     Route: 048
  20. PREDNISONE. [Concomitant]
     Active Substance: PREDNISONE
     Indication: CHRONIC SPONTANEOUS URTICARIA
     Dosage: UNK
     Route: 065
  21. ZANTAC [Concomitant]
     Active Substance: RANITIDINE HYDROCHLORIDE
     Dosage: UNK
     Route: 048
  22. CALCIUM AMINOSALICYLATE [Concomitant]
     Indication: PRODUCT USED FOR UNKNOWN INDICATION
     Dosage: UNK
     Route: 065

REACTIONS (18)
  - Wrong technique in product usage process [Not Recovered/Not Resolved]
  - Bruxism [Not Recovered/Not Resolved]
  - Hypersensitivity [Not Recovered/Not Resolved]
  - Anxiety [Not Recovered/Not Resolved]
  - Discomfort [Not Recovered/Not Resolved]
  - Weight decreased [Not Recovered/Not Resolved]
  - Drug ineffective [Not Recovered/Not Resolved]
  - Haemoglobin decreased [Not Recovered/Not Resolved]
  - Nasopharyngitis [Not Recovered/Not Resolved]
  - Loose tooth [Not Recovered/Not Resolved]
  - Throat tightness [Not Recovered/Not Resolved]
  - Urticaria [Not Recovered/Not Resolved]
  - Swelling [Not Recovered/Not Resolved]
  - Pain [Not Recovered/Not Resolved]
  - Feeling hot [Not Recovered/Not Resolved]
  - Memory impairment [Not Recovered/Not Resolved]
  - Pruritus [Not Recovered/Not Resolved]
  - Diarrhoea [Not Recovered/Not Resolved]
